FAERS Safety Report 7728202-7 (Version None)
Quarter: 2011Q3

REPORT INFORMATION
  Report Type: 
  Country: None (occurrence: None)
  Receive Date: 20110905
  Receipt Date: 20110822
  Transmission Date: 20111222
  Serious: Yes (Other)
  Sender: FDA-Public Use
  Company Number: PHHY2011BR49336

PATIENT
  Age: 51 Year
  Sex: Female

DRUGS (3)
  1. ATENOLOL [Concomitant]
     Dosage: 100 MG (2 TABLETS OF 50MG), UNK
  2. DIOVAN HCT [Suspect]
     Dosage: 2 DF (160/12.5MG DAILY) , UNK
  3. DIOVAN HCT [Suspect]
     Indication: HYPERTENSION
     Dosage: 1 DF (160/12.5MG DAILY)
     Dates: start: 20100101

REACTIONS (2)
  - HEADACHE [None]
  - BLOOD PRESSURE INCREASED [None]
